FAERS Safety Report 7647053-5 (Version None)
Quarter: 2011Q3

REPORT INFORMATION
  Report Type: 
  Country: None (occurrence: None)
  Receive Date: 20110801
  Receipt Date: 20110729
  Transmission Date: 20111222
  Serious: Yes (Other)
  Sender: FDA-Public Use
  Company Number: US-PFIZER INC-2011173557

PATIENT
  Sex: Female
  Weight: 95.238 kg

DRUGS (2)
  1. LYRICA [Suspect]
     Indication: NEURALGIA
     Dosage: 50 MG, 1X/DAY
     Route: 048
     Dates: start: 20110728, end: 20110729
  2. FLUOXETINE [Concomitant]
     Dosage: UNK

REACTIONS (3)
  - PAIN [None]
  - HEADACHE [None]
  - NERVOUS SYSTEM DISORDER [None]
